FAERS Safety Report 15558727 (Version 1)
Quarter: 2018Q4

REPORT INFORMATION
  Report Type: Report from Study
  Country: None (occurrence: US)
  Receive Date: 20181029
  Receipt Date: 20181029
  Transmission Date: 20190205
  Serious: Yes (Other)
  Sender: FDA-Public Use
  Company Number: US-ABBVIE-18K-163-2483000-00

PATIENT
  Age: 54 Year
  Sex: Female

DRUGS (1)
  1. HUMIRA [Suspect]
     Active Substance: ADALIMUMAB
     Indication: CROHN^S DISEASE
     Route: 058

REACTIONS (9)
  - Autoimmune thyroiditis [Not Recovered/Not Resolved]
  - Lethargy [Unknown]
  - Alopecia [Not Recovered/Not Resolved]
  - Colitis [Unknown]
  - Histone antibody positive [Not Recovered/Not Resolved]
  - Systemic lupus erythematosus [Not Recovered/Not Resolved]
  - Depression [Not Recovered/Not Resolved]
  - Road traffic accident [Unknown]
  - Amnesia [Unknown]

NARRATIVE: CASE EVENT DATE: 2015
